FAERS Safety Report 9053450 (Version 1)
Quarter: 2013Q1

REPORT INFORMATION
  Report Type: Spontaneous
  Country: JP (occurrence: JP)
  Receive Date: 20130208
  Receipt Date: 20130208
  Transmission Date: 20140127
  Serious: Yes (Death, Hospitalization)
  Sender: FDA-Public Use
  Company Number: JP-BAYER-2012-134106

PATIENT
  Age: 81 Year
  Sex: Male
  Weight: 67 kg

DRUGS (6)
  1. NEXAVAR [Suspect]
     Indication: HEPATOCELLULAR CARCINOMA
     Dosage: DAILY DOSE 400 MG
     Route: 048
     Dates: start: 20120529, end: 20121210
  2. GASTER D [Concomitant]
     Dosage: DAILY DOSE 20 MG
     Route: 048
     Dates: end: 20121210
  3. GLIMEPIRIDE [Concomitant]
     Dosage: DAILY DOSE 1 MG
     Route: 048
     Dates: end: 20121210
  4. GLACTIV [Concomitant]
     Dosage: DAILY DOSE 50 MG
     Route: 048
     Dates: end: 20121210
  5. MICAMLO [Concomitant]
     Dosage: UNK
     Route: 048
     Dates: end: 20121210
  6. LASIX [Concomitant]
     Dosage: DAILY DOSE 20 MG
     Route: 048
     Dates: end: 20121210

REACTIONS (8)
  - Gastrointestinal ulcer haemorrhage [Recovering/Resolving]
  - Haematemesis [None]
  - Anaemia [Recovering/Resolving]
  - Oesophageal varices haemorrhage [Recovering/Resolving]
  - Hepatocellular carcinoma [Fatal]
  - Hepatic cirrhosis [Fatal]
  - Ascites [Fatal]
  - Dyspnoea [Fatal]
